FAERS Safety Report 6848055-9 (Version None)
Quarter: 2010Q3

REPORT INFORMATION
  Report Type: 
  Country: None (occurrence: None)
  Receive Date: 20100714
  Receipt Date: 20100702
  Transmission Date: 20110219
  Serious: Yes (Life-Threatening)
  Sender: FDA-Public Use
  Company Number: 7009821

PATIENT
  Age: 51 Year
  Sex: Female

DRUGS (2)
  1. GONAL-F [Suspect]
     Indication: INFERTILITY
     Dosage: SUBCUTANEOUS
     Route: 058
     Dates: start: 19980101, end: 19980101
  2. METRODIN [Suspect]
     Indication: INFERTILITY
     Dates: start: 19961001, end: 19970701

REACTIONS (1)
  - OVARIAN CANCER [None]
